FAERS Safety Report 24804919 (Version 2)
Quarter: 2025Q1

REPORT INFORMATION
  Report Type: Spontaneous
  Country: US (occurrence: US)
  Receive Date: 20250103
  Receipt Date: 20250203
  Transmission Date: 20250409
  Serious: Yes (Hospitalization, Other)
  Sender: PFIZER
  Company Number: US-PFIZER INC-PV202400169779

PATIENT
  Age: 51 Year
  Sex: Male

DRUGS (2)
  1. FENTANYL CITRATE [Suspect]
     Active Substance: FENTANYL CITRATE
     Route: 042
  2. XYLAZINE [Suspect]
     Active Substance: XYLAZINE

REACTIONS (1)
  - Gastric ulcer [Unknown]
